FAERS Safety Report 11498284 (Version 2)
Quarter: 2015Q3

REPORT INFORMATION
  Report Type: Spontaneous
  Country: FR (occurrence: FR)
  Receive Date: 20150911
  Receipt Date: 20150918
  Transmission Date: 20151125
  Serious: Yes (Other)
  Sender: FDA-Public Use
  Company Number: FR-SUNOVION-2015SUN000176

PATIENT

DRUGS (16)
  1. ZEBINIX [Suspect]
     Active Substance: ESLICARBAZEPINE ACETATE
     Indication: PARTIAL SEIZURES
     Dosage: 400 MG
     Route: 048
     Dates: start: 20150729, end: 20150804
  2. URBANYL [Concomitant]
     Active Substance: CLOBAZAM
     Dosage: UNK
     Route: 048
  3. KEPPRA [Concomitant]
     Active Substance: LEVETIRACETAM
     Dosage: UNK
     Route: 048
  4. LAMICTAL [Concomitant]
     Active Substance: LAMOTRIGINE
     Dosage: {300 MG
     Route: 048
     Dates: start: 201502
  5. URBANYL [Concomitant]
     Active Substance: CLOBAZAM
     Dosage: UNK
     Route: 048
     Dates: end: 20150729
  6. KEPPRA [Concomitant]
     Active Substance: LEVETIRACETAM
     Indication: PARTIAL SEIZURES
     Dosage: UNK
     Route: 048
     Dates: end: 2015
  7. LAMICTAL [Concomitant]
     Active Substance: LAMOTRIGINE
     Dosage: UNK
     Route: 048
  8. URBANYL [Concomitant]
     Active Substance: CLOBAZAM
     Indication: PARTIAL SEIZURES
     Dosage: UNK
     Route: 048
  9. ZEBINIX [Suspect]
     Active Substance: ESLICARBAZEPINE ACETATE
     Dosage: 800 MG
     Route: 048
     Dates: start: 20150805, end: 20150808
  10. KEPPRA [Concomitant]
     Active Substance: LEVETIRACETAM
     Dosage: UNK
     Route: 048
  11. URBANYL [Concomitant]
     Active Substance: CLOBAZAM
     Dosage: PROGRESSIVELY REDUCED
     Route: 048
  12. URBANYL [Concomitant]
     Active Substance: CLOBAZAM
     Dosage: PROGRESSIVELY REDUCED
     Route: 048
     Dates: start: 20150729, end: 20150808
  13. URBANYL [Concomitant]
     Active Substance: CLOBAZAM
     Dosage: UNK
     Route: 048
     Dates: start: 20150808, end: 20150902
  14. KEPPRA [Concomitant]
     Active Substance: LEVETIRACETAM
     Dosage: UNK
     Route: 048
  15. LAMICTAL [Concomitant]
     Active Substance: LAMOTRIGINE
     Indication: PARTIAL SEIZURES
     Dosage: 300 MG, DAILY
     Route: 048
  16. URBANYL [Concomitant]
     Active Substance: CLOBAZAM
     Dosage: PROGRESSIVELY REDUCED
     Route: 048
     Dates: start: 20150902

REACTIONS (3)
  - Rash generalised [Recovered/Resolved]
  - Rash erythematous [Recovered/Resolved]
  - Pruritus [Recovered/Resolved]

NARRATIVE: CASE EVENT DATE: 201508
